FAERS Safety Report 8344772-2 (Version None)
Quarter: 2012Q2

REPORT INFORMATION
  Report Type: 
  Country: None (occurrence: None)
  Receive Date: 20120508
  Receipt Date: 20120501
  Transmission Date: 20120825
  Serious: Yes (Other)
  Sender: FDA-Public Use
  Company Number: US-ASTRAZENECA-2012SE28188

PATIENT
  Age: 55 Year
  Sex: Male
  Weight: 86.2 kg

DRUGS (1)
  1. SEROQUEL XR [Suspect]
     Indication: BIPOLAR I DISORDER
     Route: 048
     Dates: start: 20111201

REACTIONS (2)
  - SUICIDAL IDEATION [None]
  - INTENTIONAL DRUG MISUSE [None]
